FAERS Safety Report 20461092 (Version 3)
Quarter: 2022Q4

REPORT INFORMATION
  Report Type: Spontaneous
  Country: US (occurrence: US)
  Receive Date: 20220211
  Receipt Date: 20221006
  Transmission Date: 20230113
  Serious: No
  Sender: FDA-Public Use
  Company Number: US-COLLEGIUM PHARMACEUTICAL, INC.-2022CGM00082

PATIENT
  Sex: Female

DRUGS (7)
  1. NUCYNTA ER [Suspect]
     Active Substance: TAPENTADOL HYDROCHLORIDE
     Dosage: 150 MG, 2X/DAY
  2. HYDROCODONE [Concomitant]
     Active Substance: HYDROCODONE
     Dosage: 10 MG 2-3 TIMES PER DAY
  3. OTREXUP [Concomitant]
     Active Substance: METHOTREXATE
  4. NEURONTIN [Concomitant]
     Active Substance: GABAPENTIN
     Dosage: 350 MG, 3X/DAY
  5. HUMIRA [Concomitant]
     Active Substance: ADALIMUMAB
  6. BACLOFEN [Concomitant]
     Active Substance: BACLOFEN
     Dosage: UNK, 1X/DAY
  7. GABAPENTIN [Concomitant]
     Active Substance: GABAPENTIN
     Dosage: 600 MG 2-3 TIMES PER DAY

REACTIONS (2)
  - Intentional product misuse [Not Recovered/Not Resolved]
  - Inability to afford medication [None]
